FAERS Safety Report 5027794-9 (Version None)
Quarter: 2006Q2

REPORT INFORMATION
  Report Type: 
  Country: None (occurrence: None)
  Receive Date: 20060501
  Receipt Date: 20060112
  Transmission Date: 20061013
  Serious: No
  Sender: FDA-Public Use
  Company Number: 200516647US

PATIENT
  Age: 36 Year
  Sex: Female

DRUGS (3)
  1. KETEK [Suspect]
     Indication: EAR INFECTION
     Dosage: 800 MG  QD  PO
     Route: 048
     Dates: start: 20050714, end: 20050719
  2. METHYLPREDNISOLONE [Concomitant]
  3. VITAMINS NOS, MINERALS NOS (CENTRUM) [Concomitant]

REACTIONS (7)
  - ANOREXIA [None]
  - ANXIETY [None]
  - PAIN [None]
  - PRURITUS [None]
  - PYREXIA [None]
  - RASH [None]
  - WEIGHT INCREASED [None]
